FAERS Safety Report 18532972 (Version 1)
Quarter: 2020Q4

REPORT INFORMATION
  Report Type: Spontaneous
  Country: FR (occurrence: FR)
  Receive Date: 20201123
  Receipt Date: 20201123
  Transmission Date: 20210114
  Serious: Yes (Hospitalization)
  Sender: FDA-Public Use
  Company Number: FR-ACCORD-208729

PATIENT
  Age: 77 Year
  Sex: Female
  Weight: 45 kg

DRUGS (8)
  1. FLECTOR [Concomitant]
     Active Substance: DICLOFENAC EPOLAMINE
  2. METHOTREXATE. [Suspect]
     Active Substance: METHOTREXATE
     Indication: RHEUMATOID ARTHRITIS
     Route: 048
     Dates: start: 20201028, end: 20201028
  3. DOLIPRANE [Concomitant]
     Active Substance: ACETAMINOPHEN
  4. OROCAL [Concomitant]
     Dosage: STRENGTH- 500 MG
  5. FOLIC ACID. [Concomitant]
     Active Substance: FOLIC ACID
  6. TEMERIT DUO [Concomitant]
     Active Substance: HYDROCHLOROTHIAZIDE\NEBIVOLOL HYDROCHLORIDE
  7. TRANXENE [Concomitant]
     Active Substance: CLORAZEPATE DIPOTASSIUM
     Dosage: STRENGTH-5 MG
  8. ROSUVASTATIN/ROSUVASTATIN CALCIUM [Concomitant]
     Active Substance: ROSUVASTATIN CALCIUM

REACTIONS (3)
  - Acute myocardial infarction [Recovering/Resolving]
  - Accidental overdose [Unknown]
  - Wrong product administered [Unknown]

NARRATIVE: CASE EVENT DATE: 20201028
